FAERS Safety Report 7042662-9 (Version None)
Quarter: 2010Q4

REPORT INFORMATION
  Report Type: 
  Country: None (occurrence: None)
  Receive Date: 20101013
  Receipt Date: 20100601
  Transmission Date: 20110411
  Serious: No
  Sender: FDA-Public Use
  Company Number: US-ASTRAZENECA-2010SE25517

PATIENT

DRUGS (4)
  1. SYMBICORT [Suspect]
     Dosage: 160/4.5
     Route: 055
  2. MIRAPEX [Concomitant]
  3. EFFEXOR XR [Concomitant]
  4. THEOPHYLLINE [Concomitant]

REACTIONS (1)
  - CHRONIC OBSTRUCTIVE PULMONARY DISEASE [None]
